FAERS Safety Report 15248350 (Version 1)
Quarter: 2018Q3

REPORT INFORMATION
  Report Type: Spontaneous
  Country: US (occurrence: US)
  Receive Date: 20180715
  Receipt Date: 20180715
  Transmission Date: 20181010
  Serious: Yes (Disabling)
  Sender: FDA-Public Use
  Company Number: None

PATIENT
  Age: 61 Year
  Sex: Male
  Weight: 78.75 kg

DRUGS (3)
  1. ALLEREST [Concomitant]
     Active Substance: CHLORPHENIRAMINE MALEATE\PHENYLEPHRINE HYDROCHLORIDE
  2. STATIN??FOR CHOLESTEROL [Concomitant]
  3. ARBONNE ESSENTIALS HERBAL MUSCLE MASSAGE PAIN RELIEVING GEL [Suspect]
     Active Substance: CAPSAICIN\MENTHOL\METHYL SALICYLATE
     Indication: MYALGIA
     Dosage: ?          QUANTITY:4 OUNCE(S);?
     Route: 061
     Dates: start: 20180714, end: 20180714

REACTIONS (6)
  - Pain in extremity [None]
  - Product quality issue [None]
  - Manufacturing materials issue [None]
  - Application site burn [None]
  - Gait disturbance [None]
  - Insomnia [None]

NARRATIVE: CASE EVENT DATE: 20180714
